FAERS Safety Report 18368954 (Version 1)
Quarter: 2020Q4

REPORT INFORMATION
  Report Type: Report from Study
  Country: JP (occurrence: JP)
  Receive Date: 20201011
  Receipt Date: 20201011
  Transmission Date: 20210114
  Serious: Yes (Other)
  Sender: FDA-Public Use
  Company Number: JP-TEVA-2019-JP-1136558

PATIENT
  Age: 34 Year
  Sex: Female
  Weight: 46.2 kg

DRUGS (3)
  1. SOLU-MEDROL [Concomitant]
     Active Substance: METHYLPREDNISOLONE SODIUM SUCCINATE
     Dates: start: 20191106, end: 20191108
  2. COPAXONE [Suspect]
     Active Substance: GLATIRAMER ACETATE
     Indication: RELAPSING-REMITTING MULTIPLE SCLEROSIS
     Route: 065
     Dates: start: 20191031, end: 20191119
  3. COPAXONE [Suspect]
     Active Substance: GLATIRAMER ACETATE
     Indication: PROGRESSIVE MULTIPLE SCLEROSIS

REACTIONS (4)
  - Off label use [Unknown]
  - Maternal exposure during pregnancy [Unknown]
  - Injection site erythema [Recovered/Resolved]
  - Abortion induced [Unknown]

NARRATIVE: CASE EVENT DATE: 20191031
